FAERS Safety Report 24080144 (Version 1)
Quarter: 2024Q3

REPORT INFORMATION
  Report Type: Spontaneous
  Country: TW (occurrence: TW)
  Receive Date: 20240711
  Receipt Date: 20240711
  Transmission Date: 20241017
  Serious: Yes (Other)
  Sender: BAYER
  Company Number: TW-BAYER-2024A097974

PATIENT
  Age: 62 Year
  Sex: Female

DRUGS (1)
  1. REGORAFENIB [Suspect]
     Active Substance: REGORAFENIB
     Indication: Rectal cancer
     Dosage: 80 MG, QD
     Route: 048
     Dates: start: 2022

REACTIONS (3)
  - Necrolytic migratory erythema [Recovered/Resolved]
  - Hypozincaemia [None]
  - Off label use [None]

NARRATIVE: CASE EVENT DATE: 20220101
